FAERS Safety Report 19455068 (Version 3)
Quarter: 2021Q3

REPORT INFORMATION
  Report Type: Report from Study
  Country: NL (occurrence: NL)
  Receive Date: 20210623
  Receipt Date: 20210730
  Transmission Date: 20211014
  Serious: Yes (Hospitalization, Other)
  Sender: FDA-Public Use
  Company Number: NL-PFIZER INC-2021686965

PATIENT
  Age: 84 Year
  Sex: Female

DRUGS (17)
  1. DEXAMETHASONE. [Concomitant]
     Active Substance: DEXAMETHASONE
  2. XGEVA [Suspect]
     Active Substance: DENOSUMAB
     Dosage: 1.7ML, CYCLIC Q4WK
     Route: 058
     Dates: start: 20210325
  3. ENALAPRIL [Concomitant]
     Active Substance: ENALAPRIL
  4. METOPROLOL SUCCINATE. [Concomitant]
     Active Substance: METOPROLOL SUCCINATE
  5. PANTOPRAZOLE [Concomitant]
     Active Substance: PANTOPRAZOLE
  6. XGEVA [Suspect]
     Active Substance: DENOSUMAB
     Indication: PROPHYLAXIS
     Dosage: 1.7ML, CYCLIC Q4WK
     Route: 058
     Dates: start: 20191010
  7. COLECALCIFEROL [Concomitant]
     Active Substance: CHOLECALCIFEROL
  8. FUROSEMIDE. [Concomitant]
     Active Substance: FUROSEMIDE
  9. MACROGOL [Concomitant]
     Active Substance: POLYETHYLENE GLYCOLS
  10. XGEVA [Suspect]
     Active Substance: DENOSUMAB
     Dosage: 1.7ML, CYCLIC Q4WK
     Route: 058
     Dates: start: 20210422
  11. DIGOXINE [Concomitant]
     Active Substance: DIGOXIN
  12. PALBOCICLIB [Concomitant]
     Active Substance: PALBOCICLIB
  13. RIVAROXABAN [Concomitant]
     Active Substance: RIVAROXABAN
  14. MAGNESIUMHYDROXIDE [Concomitant]
  15. FULVESTRANT. [Concomitant]
     Active Substance: FULVESTRANT
  16. IBRANCE [Suspect]
     Active Substance: PALBOCICLIB
     Indication: METASTASES TO LIVER
     Dosage: UNK
  17. IBRANCE [Suspect]
     Active Substance: PALBOCICLIB
     Indication: METASTASES TO LUNG

REACTIONS (7)
  - Dyspnoea exertional [Unknown]
  - Dyspnoea at rest [Unknown]
  - Neoplasm progression [Not Recovered/Not Resolved]
  - Diarrhoea [Not Recovered/Not Resolved]
  - Dyspnoea [Recovered/Resolved]
  - Decreased appetite [Unknown]
  - Haemoglobin abnormal [Unknown]

NARRATIVE: CASE EVENT DATE: 20210419
